FAERS Safety Report 17838011 (Version 1)
Quarter: 2020Q2

REPORT INFORMATION
  Report Type: Spontaneous
  Country: US (occurrence: US)
  Receive Date: 20200528
  Receipt Date: 20200528
  Transmission Date: 20200714
  Serious: Yes (Hospitalization)
  Sender: FDA-Public Use
  Company Number: US-ASTRAZENECA-2020SE68272

PATIENT
  Age: 3961 Week
  Sex: Male
  Weight: 68 kg

DRUGS (7)
  1. LORAZIPAM [Concomitant]
     Dosage: UNKNOWN
     Route: 065
  2. TAMSULOSIN [Concomitant]
     Active Substance: TAMSULOSIN
     Dosage: UNKNOWN
     Route: 065
  3. BRILINTA [Suspect]
     Active Substance: TICAGRELOR
     Indication: CARDIAC DISORDER
     Route: 048
  4. METAPROLOL [Suspect]
     Active Substance: METOPROLOL
     Dosage: UNKNOWN
     Route: 048
  5. DIGOXIN. [Concomitant]
     Active Substance: DIGOXIN
     Dosage: UNKNOWN
     Route: 065
  6. BRILINTA [Suspect]
     Active Substance: TICAGRELOR
     Indication: CARDIAC DISORDER
     Route: 048
  7. ATORVASTAIN [Concomitant]
     Active Substance: ATORVASTATIN
     Dosage: UNKNOWN
     Route: 065

REACTIONS (2)
  - Diplegia [Recovering/Resolving]
  - Reocclusion [Recovering/Resolving]
